FAERS Safety Report 7447083-2 (Version None)
Quarter: 2011Q2

REPORT INFORMATION
  Report Type: 
  Country: None (occurrence: None)
  Receive Date: 20110421
  Receipt Date: 20110405
  Transmission Date: 20111010
  Serious: Yes (Hospitalization)
  Sender: FDA-Public Use
  Company Number: DSA_44600_2010

PATIENT
  Age: 62 Year
  Sex: Female

DRUGS (5)
  1. XENAZINE [Suspect]
     Indication: DYSKINESIA
     Dosage: (25 MG QD ORAL)
     Route: 048
     Dates: start: 20101010, end: 20101125
  2. BIPERIDEN HYDROCHLORIDE TAB [Concomitant]
  3. FRISIUM (FRISIUM - CLOBAZAM ) 5 MG (NOT SPECIFIED) [Suspect]
     Indication: EPILEPSY
     Dosage: (5 MG 1X/6 HOURS ORAL)
     Route: 048
     Dates: start: 20101007, end: 20101125
  4. ATHYMIL (ATHYMIL-MIANEERIN   HYDROCHLORIDE) 60 MG (NOT SPECIFIED) [Suspect]
     Indication: PRODUCT USED FOR UNKNOWN INDICATION
     Dosage: (60 MG QD ORAL)
     Route: 048
  5. LEXOMIL (LEXOMIL - BROMAZEPAM ) 0.5 DF  (NOT SPECIFIED) [Suspect]
     Indication: ANXIETY
     Dosage: (0.5 DF TID ORAL)
     Route: 048
     Dates: end: 20101007

REACTIONS (19)
  - WEIGHT DECREASED [None]
  - DRUG WITHDRAWAL CONVULSIONS [None]
  - SUICIDAL IDEATION [None]
  - TREMOR [None]
  - GAIT DISTURBANCE [None]
  - TREATMENT NONCOMPLIANCE [None]
  - ANHEDONIA [None]
  - DECREASED APPETITE [None]
  - PSYCHIATRIC SYMPTOM [None]
  - DRUG EFFECT DECREASED [None]
  - SLEEP DISORDER [None]
  - DYSKINESIA [None]
  - PAIN IN EXTREMITY [None]
  - GOITRE [None]
  - COAGULATION TIME SHORTENED [None]
  - ABULIA [None]
  - PSYCHOMOTOR SKILLS IMPAIRED [None]
  - MAJOR DEPRESSION [None]
  - BLOOD ALBUMIN DECREASED [None]
